FAERS Safety Report 7924535-X (Version None)
Quarter: 2011Q4

REPORT INFORMATION
  Report Type: 
  Country: None (occurrence: None)
  Receive Date: 20111117
  Receipt Date: 20110323
  Transmission Date: 20120403
  Serious: No
  Sender: FDA-Public Use
  Company Number: US-AMGEN-USASP2011011904

PATIENT
  Age: 39 Year
  Sex: Female

DRUGS (1)
  1. ENBREL [Suspect]
     Indication: RHEUMATOID ARTHRITIS
     Dosage: 50 MG, QWK
     Dates: start: 20050109

REACTIONS (8)
  - SINUSITIS [None]
  - PAIN [None]
  - INFLUENZA [None]
  - INJECTION SITE ERYTHEMA [None]
  - MALAISE [None]
  - INJECTION SITE SWELLING [None]
  - INJECTION SITE REACTION [None]
  - ARTHRALGIA [None]
